FAERS Safety Report 25016282 (Version 1)
Quarter: 2025Q1

REPORT INFORMATION
  Report Type: Report from Study
  Country: DE (occurrence: DE)
  Receive Date: 20250227
  Receipt Date: 20250227
  Transmission Date: 20250409
  Serious: Yes (Hospitalization)
  Sender: TEVA
  Company Number: DE-TEVA-VS-3301455

PATIENT
  Age: 54 Year
  Sex: Female
  Weight: 83 kg

DRUGS (1)
  1. COPAXONE [Suspect]
     Active Substance: GLATIRAMER ACETATE
     Indication: Relapsing-remitting multiple sclerosis
     Route: 065
     Dates: start: 201510, end: 202112

REACTIONS (6)
  - Portal fibrosis [Recovering/Resolving]
  - Steatohepatitis [Recovering/Resolving]
  - Drug-induced liver injury [Recovering/Resolving]
  - Stenosis [Recovering/Resolving]
  - Metabolic dysfunction-associated steatohepatitis [Recovering/Resolving]
  - Cardiac septal hypertrophy [Recovering/Resolving]

NARRATIVE: CASE EVENT DATE: 20211209
